FAERS Safety Report 25630668 (Version 1)
Quarter: 2025Q3

REPORT INFORMATION
  Report Type: Report from Study
  Country: BR (occurrence: BR)
  Receive Date: 20250801
  Receipt Date: 20250801
  Transmission Date: 20251020
  Serious: Yes (Hospitalization, Other)
  Sender: EMD SERONO INC
  Company Number: BR-Merck Healthcare KGaA-2025003993

PATIENT
  Age: 31 Year
  Sex: Male

DRUGS (1)
  1. INTERFERON BETA-1A [Suspect]
     Active Substance: INTERFERON BETA-1A
     Indication: Multiple sclerosis
     Dates: start: 20190710

REACTIONS (3)
  - Fistula [Unknown]
  - Thrombotic microangiopathy [Recovering/Resolving]
  - Atypical haemolytic uraemic syndrome [Recovering/Resolving]

NARRATIVE: CASE EVENT DATE: 20241124
